FAERS Safety Report 25106587 (Version 1)
Quarter: 2025Q1

REPORT INFORMATION
  Report Type: Spontaneous
  Country: US (occurrence: None)
  Receive Date: 20250321
  Receipt Date: 20250321
  Transmission Date: 20250408
  Serious: Yes (Life-Threatening)
  Sender: FDA-CTU
  Company Number: None

PATIENT
  Age: 60 Year
  Sex: Female
  Weight: 60.3 kg

DRUGS (1)
  1. VERZENIO [Suspect]
     Active Substance: ABEMACICLIB
     Indication: Breast cancer
     Dosage: FREQUENCY : TWICE A DAY;?
     Route: 048
     Dates: start: 20250103, end: 20250214

REACTIONS (5)
  - Vomiting [None]
  - Diarrhoea [None]
  - Gingival bleeding [None]
  - Epistaxis [None]
  - Therapy interrupted [None]

NARRATIVE: CASE EVENT DATE: 20250219
